FAERS Safety Report 9970655 (Version 1)
Quarter: 2014Q1

REPORT INFORMATION
  Report Type: Report from Study
  Country: US (occurrence: US)
  Receive Date: 20140306
  Receipt Date: 20140306
  Transmission Date: 20141002
  Serious: No
  Sender: FDA-Public Use
  Company Number: US-ABBVIE-13P-163-1147708-00

PATIENT
  Age: 59 Year
  Sex: Female
  Weight: 61.29 kg

DRUGS (8)
  1. HUMIRA [Suspect]
     Indication: RHEUMATOID ARTHRITIS
     Dates: end: 2012
  2. HUMIRA [Suspect]
  3. LISINOPRIL [Concomitant]
     Indication: HYPERTENSION
  4. VERAPAMIL [Concomitant]
     Indication: HYPERTENSION
  5. PREDNISONE [Concomitant]
     Indication: RHEUMATOID ARTHRITIS
  6. CITALOPRAM [Concomitant]
     Indication: RHEUMATOID ARTHRITIS
  7. XANAX [Concomitant]
     Indication: ANXIETY
  8. HYDROCODONE [Concomitant]
     Indication: PAIN

REACTIONS (9)
  - Feeling hot [Not Recovered/Not Resolved]
  - Injection site pain [Not Recovered/Not Resolved]
  - Local swelling [Not Recovered/Not Resolved]
  - Pain in extremity [Not Recovered/Not Resolved]
  - Local swelling [Not Recovered/Not Resolved]
  - Pain in extremity [Not Recovered/Not Resolved]
  - Inflammation [Recovered/Resolved]
  - Erythema [Not Recovered/Not Resolved]
  - Skin tightness [Not Recovered/Not Resolved]
